FAERS Safety Report 22291594 (Version 2)
Quarter: 2023Q2

REPORT INFORMATION
  Report Type: Spontaneous
  Country: US (occurrence: US)
  Receive Date: 20230507
  Receipt Date: 20230607
  Transmission Date: 20230722
  Serious: Yes (Other)
  Sender: FDA-Public Use
  Company Number: US-ABBVIE-4754222

PATIENT
  Sex: Male

DRUGS (15)
  1. LUPRON DEPOT [Suspect]
     Active Substance: LEUPROLIDE ACETATE
     Indication: Product used for unknown indication
     Route: 065
  2. HYDROCODONE [Concomitant]
     Active Substance: HYDROCODONE
     Indication: Product used for unknown indication
  3. ADDERALL [Concomitant]
     Active Substance: AMPHETAMINE ASPARTATE\AMPHETAMINE SULFATE\DEXTROAMPHETAMINE SACCHARATE\DEXTROAMPHETAMINE SULFATE
     Indication: Product used for unknown indication
     Dosage: FORM STRENGTH: 20 MILLIGRAM
  4. ENZALUTAMIDE [Suspect]
     Active Substance: ENZALUTAMIDE
     Indication: Prostate cancer
     Dosage: FORM STRENGTH: 80 MILLIGRAM
     Route: 048
     Dates: start: 20210202
  5. ENZALUTAMIDE [Suspect]
     Active Substance: ENZALUTAMIDE
     Indication: Prostate cancer
     Dosage: FORM STRENGTH: 80 MILLIGRAM
     Route: 048
     Dates: start: 20230302
  6. ENZALUTAMIDE [Suspect]
     Active Substance: ENZALUTAMIDE
     Indication: Prostate cancer
     Route: 048
  7. ENZALUTAMIDE [Suspect]
     Active Substance: ENZALUTAMIDE
     Indication: Prostate cancer
     Route: 048
  8. ENZALUTAMIDE [Suspect]
     Active Substance: ENZALUTAMIDE
     Indication: Prostate cancer
     Route: 048
  9. PRAVASTATIN [Concomitant]
     Active Substance: PRAVASTATIN
     Indication: Product used for unknown indication
     Dosage: FORM STRENGTH: 40 MILLIGRAM
  10. TYLENOL [Concomitant]
     Active Substance: ACETAMINOPHEN
     Indication: Product used for unknown indication
     Dosage: FORM STRENGTH: 500 MILLIGRAM
  11. SACCHAROMYCES CEREVISIAE [Concomitant]
     Active Substance: SACCHAROMYCES CEREVISIAE
     Indication: Product used for unknown indication
     Dosage: FORM STRENGTH: 250 MILLIGRAM
  12. MIRALAX [Concomitant]
     Active Substance: POLYETHYLENE GLYCOL 3350
     Indication: Product used for unknown indication
  13. Triamcinolon [Concomitant]
     Indication: Product used for unknown indication
     Dosage: 0.025%
  14. VENLAFAXINE [Concomitant]
     Active Substance: VENLAFAXINE HYDROCHLORIDE
     Indication: Product used for unknown indication
     Dosage: 37.5 MG
  15. FENTANYL [Concomitant]
     Active Substance: FENTANYL
     Indication: Product used for unknown indication

REACTIONS (30)
  - Aortic aneurysm [Unknown]
  - Abdominal discomfort [Unknown]
  - Weight decreased [Unknown]
  - Paraesthesia [Unknown]
  - Arthralgia [Recovering/Resolving]
  - Malaise [Unknown]
  - Fatigue [Unknown]
  - Nocturia [Unknown]
  - Insomnia [Unknown]
  - Muscle atrophy [Unknown]
  - Gait inability [Not Recovered/Not Resolved]
  - Joint instability [Unknown]
  - Dysstasia [Not Recovered/Not Resolved]
  - Hyperaesthesia [Unknown]
  - Memory impairment [Unknown]
  - Thinking abnormal [Unknown]
  - Balance disorder [Unknown]
  - Pain in extremity [Unknown]
  - Vision blurred [Unknown]
  - Hot flush [Not Recovered/Not Resolved]
  - Vertigo [Unknown]
  - Formication [Unknown]
  - Decreased appetite [Unknown]
  - Blood pressure increased [Unknown]
  - Pollakiuria [Unknown]
  - Disturbance in attention [Unknown]
  - Dizziness [Unknown]
  - Incontinence [Unknown]
  - Bone density decreased [Not Recovered/Not Resolved]
  - Asthenia [Unknown]
